FAERS Safety Report 11448586 (Version 1)
Quarter: 2015Q3

REPORT INFORMATION
  Report Type: Report from Study
  Country: IE (occurrence: IE)
  Receive Date: 20150902
  Receipt Date: 20150902
  Transmission Date: 20151125
  Serious: Yes (Other)
  Sender: FDA-Public Use
  Company Number: IE-BAYER-2015-359604

PATIENT
  Age: 50 Year
  Sex: Female

DRUGS (2)
  1. STIVARGA [Suspect]
     Active Substance: REGORAFENIB
     Indication: COLORECTAL CANCER METASTATIC
     Dosage: 160 MG, QD
     Route: 048
     Dates: start: 20150615, end: 20150702
  2. ZOTON [Concomitant]
     Active Substance: LANSOPRAZOLE

REACTIONS (5)
  - Headache [None]
  - Fatigue [None]
  - Hypertension [Recovered/Resolved]
  - Oral pain [None]
  - Peripheral swelling [None]

NARRATIVE: CASE EVENT DATE: 20150615
